FAERS Safety Report 8348141-0 (Version None)
Quarter: 2012Q2

REPORT INFORMATION
  Report Type: 
  Country: None (occurrence: None)
  Receive Date: 20120509
  Receipt Date: 20120507
  Transmission Date: 20120825
  Serious: No
  Sender: FDA-Public Use
  Company Number: US-PFIZER INC-2012111669

PATIENT
  Sex: Male

DRUGS (11)
  1. LISINOPRIL [Concomitant]
     Dosage: UNK
  2. TOPIRAMATE [Concomitant]
     Dosage: UNK
  3. MIDODRINE [Concomitant]
     Dosage: UNK
  4. COENZYME Q10 [Concomitant]
     Dosage: UNK
  5. MULTI-VITAMINS [Concomitant]
     Dosage: UNK
  6. SUMATRIPTAN [Concomitant]
     Dosage: UNK
  7. LYRICA [Suspect]
     Indication: FIBROMYALGIA
     Dosage: 100 MG, 2X/DAY
     Route: 048
     Dates: start: 20110201, end: 20120401
  8. FOLIC ACID [Concomitant]
     Dosage: UNK
  9. CARTIA XT [Concomitant]
     Dosage: UNK
  10. AMITRIPTYLINE [Concomitant]
     Dosage: UNK
  11. OMEPRAZOLE [Concomitant]
     Dosage: UNK

REACTIONS (1)
  - PAIN [None]
